FAERS Safety Report 13822944 (Version 4)
Quarter: 2019Q3

REPORT INFORMATION
  Report Type: Spontaneous
  Country: US (occurrence: US)
  Receive Date: 20170801
  Receipt Date: 20190913
  Transmission Date: 20191004
  Serious: No
  Sender: FDA-Public Use
  Company Number: US-LUNDBECK-DKLU2034355

PATIENT
  Sex: Female

DRUGS (4)
  1. NORTHERA [Suspect]
     Active Substance: DROXIDOPA
     Route: 048
     Dates: start: 20170620
  2. TIMOLOL. [Suspect]
     Active Substance: TIMOLOL
     Indication: GLAUCOMA
     Route: 065
  3. NORTHERA [Suspect]
     Active Substance: DROXIDOPA
     Indication: ORTHOSTATIC HYPOTENSION
     Route: 065
     Dates: start: 20170622
  4. NORTHERA [Suspect]
     Active Substance: DROXIDOPA
     Indication: SYNCOPE
     Route: 048
     Dates: start: 20170619

REACTIONS (7)
  - Feeling abnormal [Unknown]
  - Blood pressure fluctuation [Unknown]
  - Cold sweat [Unknown]
  - Dizziness [Unknown]
  - Palpitations [Unknown]
  - Headache [Unknown]
  - Product administration error [Unknown]
